FAERS Safety Report 11937030 (Version 2)
Quarter: 2016Q1

REPORT INFORMATION
  Report Type: Report from Study
  Country: US (occurrence: US)
  Receive Date: 20160121
  Receipt Date: 20160128
  Transmission Date: 20160526
  Serious: No
  Sender: FDA-Public Use
  Company Number: PHEH2016US001571

PATIENT
  Age: 49 Year
  Sex: Female

DRUGS (2)
  1. GILENYA [Suspect]
     Active Substance: FINGOLIMOD HYDROCHLORIDE
     Indication: MULTIPLE SCLEROSIS
     Dosage: 0.5 MG, QD
     Route: 048
     Dates: start: 20160114
  2. IMITREX [Concomitant]
     Active Substance: SUMATRIPTAN SUCCINATE
     Indication: MIGRAINE
     Dosage: UNK, PRN
     Route: 065

REACTIONS (3)
  - Somnolence [Not Recovered/Not Resolved]
  - Blood pressure increased [Unknown]
  - Headache [Recovering/Resolving]

NARRATIVE: CASE EVENT DATE: 20160114
